FAERS Safety Report 10260939 (Version 1)
Quarter: 2014Q2

REPORT INFORMATION
  Report Type: Spontaneous
  Country: IT (occurrence: IT)
  Receive Date: 20140626
  Receipt Date: 20140626
  Transmission Date: 20141212
  Serious: Yes (Other)
  Sender: FDA-Public Use
  Company Number: IT-ROCHE-1424579

PATIENT
  Age: 67 Year
  Sex: Female

DRUGS (3)
  1. KETOROLAC [Suspect]
     Indication: PRODUCT USED FOR UNKNOWN INDICATION
     Route: 065
  2. DALTEPARIN [Interacting]
     Indication: THROMBOSIS PROPHYLAXIS
     Route: 058
  3. DALTEPARIN [Interacting]
     Route: 058

REACTIONS (4)
  - Drug interaction [Unknown]
  - Bleeding time prolonged [Recovered/Resolved]
  - Extradural haematoma [Recovering/Resolving]
  - Paraplegia [Recovered/Resolved]
